FAERS Safety Report 7654035-6 (Version None)
Quarter: 2011Q3

REPORT INFORMATION
  Report Type: 
  Country: None (occurrence: None)
  Receive Date: 20110803
  Receipt Date: 20110723
  Transmission Date: 20111222
  Serious: Yes (Other)
  Sender: FDA-Public Use
  Company Number: PHHY2011MX66937

PATIENT
  Age: 30 Year
  Sex: Male

DRUGS (4)
  1. MEDECILOR [Concomitant]
     Dosage: UNK UKN, UNK
  2. RIFAXIMIN [Concomitant]
     Dosage: UNK UKN, UNK
  3. PRIXTIC [Concomitant]
     Indication: ANTIDEPRESSANT THERAPY
     Dosage: UNK UKN, UNK
  4. ZELMAC [Suspect]
     Indication: IRRITABLE BOWEL SYNDROME
     Dosage: 2 DF, QD
     Route: 048
     Dates: start: 20110709, end: 20110723

REACTIONS (7)
  - AMOEBIASIS [None]
  - HYPERHIDROSIS [None]
  - DECREASED APPETITE [None]
  - CARDIAC DISORDER [None]
  - DYSPNOEA [None]
  - COLITIS [None]
  - WEIGHT DECREASED [None]
